FAERS Safety Report 12090984 (Version 1)
Quarter: 2016Q1

REPORT INFORMATION
  Report Type: Spontaneous
  Country: US (occurrence: US)
  Receive Date: 20160218
  Receipt Date: 20160218
  Transmission Date: 20160526
  Serious: No
  Sender: FDA-Public Use
  Company Number: US-TEVA-635113USA

PATIENT
  Age: 56 Year
  Sex: Female

DRUGS (3)
  1. ESTRING [Concomitant]
     Active Substance: ESTRADIOL
     Route: 065
  2. COPAXONE [Suspect]
     Active Substance: GLATIRAMER ACETATE
     Indication: MULTIPLE SCLEROSIS
     Dates: start: 201511, end: 201601
  3. ALENDRONATE SODIUM. [Concomitant]
     Active Substance: ALENDRONATE SODIUM
     Route: 065

REACTIONS (5)
  - Chest pain [Unknown]
  - Injection site reaction [Unknown]
  - Dizziness [Unknown]
  - Nausea [Unknown]
  - Tachycardia [Unknown]

NARRATIVE: CASE EVENT DATE: 20160115
